FAERS Safety Report 6892268-7 (Version None)
Quarter: 2010Q3

REPORT INFORMATION
  Report Type: 
  Country: None (occurrence: None)
  Receive Date: 20100731
  Receipt Date: 20080325
  Transmission Date: 20110219
  Serious: Yes (Hospitalization)
  Sender: FDA-Public Use
  Company Number: US-PFIZER INC-2008026983

PATIENT
  Sex: Male
  Weight: 95.3 kg

DRUGS (9)
  1. GABAPENTIN [Suspect]
     Indication: NEUROPATHY PERIPHERAL
     Dates: start: 20070101
  2. ATENOLOL [Concomitant]
  3. VALSARTAN [Concomitant]
  4. LANTUS [Concomitant]
  5. ELAVIL [Concomitant]
  6. LEVOXYL [Concomitant]
  7. MOTRIN [Concomitant]
  8. PRILOSEC [Concomitant]
  9. ZOCOR [Concomitant]

REACTIONS (4)
  - ALANINE AMINOTRANSFERASE DECREASED [None]
  - BLOOD CHLORIDE DECREASED [None]
  - DRUG INEFFECTIVE [None]
  - ROAD TRAFFIC ACCIDENT [None]
